FAERS Safety Report 5482021-3 (Version None)
Quarter: 2007Q4

REPORT INFORMATION
  Report Type: 
  Country: None (occurrence: None)
  Receive Date: 20071005
  Receipt Date: 20070929
  Transmission Date: 20080405
  Serious: Yes (Other)
  Sender: FDA-Public Use
  Company Number: CHPA2007US10043

PATIENT
  Age: 8 Month
  Sex: Female

DRUGS (1)
  1. TRIAMINIC COLD AND ALLERGY (NCH)(CHLORPHENAMINE MALEATE, PHENYLEPHRINE [Suspect]
     Indication: COUGH
     Dosage: 0.25 TSP, ONCE/SINGLE, ORAL
     Route: 048

REACTIONS (2)
  - CONVULSION [None]
  - INCORRECT DOSE ADMINISTERED [None]
